FAERS Safety Report 9284468 (Version 3)
Quarter: 2013Q2

REPORT INFORMATION
  Report Type: Spontaneous
  Country: US (occurrence: US)
  Receive Date: 20130510
  Receipt Date: 20130628
  Transmission Date: 20140414
  Serious: No
  Sender: FDA-Public Use
  Company Number: US-009507513-1305USA002764

PATIENT
  Sex: Female

DRUGS (4)
  1. NEXPLANON [Suspect]
     Indication: CONTRACEPTION
     Dosage: 1 ROD
     Route: 059
     Dates: start: 20130429, end: 20130502
  2. NEXPLANON [Suspect]
     Dosage: UNK
     Route: 059
     Dates: start: 20130509
  3. NEXPLANON [Suspect]
     Dosage: UNK
     Route: 059
  4. NEXPLANON [Suspect]
     Dosage: UNK
     Route: 059

REACTIONS (3)
  - Device expulsion [Recovered/Resolved]
  - No adverse event [Unknown]
  - Wrong technique in drug usage process [Unknown]
